FAERS Safety Report 19003037 (Version 3)
Quarter: 2021Q2

REPORT INFORMATION
  Report Type: Spontaneous
  Country: BR (occurrence: BR)
  Receive Date: 20210312
  Receipt Date: 20210506
  Transmission Date: 20210717
  Serious: No
  Sender: FDA-Public Use
  Company Number: BR-PFIZER INC-2021243713

PATIENT
  Sex: Female

DRUGS (1)
  1. SAYANA [Suspect]
     Active Substance: MEDROXYPROGESTERONE
     Dosage: UNK

REACTIONS (5)
  - Drug dose omission by device [Unknown]
  - Device leakage [Unknown]
  - Intentional product misuse [Unknown]
  - Accidental exposure to product [Unknown]
  - Exposure via skin contact [Unknown]
